FAERS Safety Report 9541582 (Version 1)
Quarter: 2013Q2

REPORT INFORMATION
  Report Type: Spontaneous
  Country: US (occurrence: None)
  Receive Date: 20130524
  Receipt Date: 20130524
  Transmission Date: 20140414
  Serious: Yes (Other)
  Sender: FDA-Public Use
  Company Number: PHEH2012US025760

PATIENT
  Sex: Female

DRUGS (9)
  1. GILENYA [Suspect]
     Route: 048
  2. AMBIEN (ZOLPIDEM TARTRATE) [Concomitant]
  3. TRILEPTAL (OXCARBAZEPINE) [Concomitant]
  4. MIRAPEX (PRAMIPEXOLE DIHYDROCHLORIDE) [Concomitant]
  5. PROZAC (FLUOXETINE HYDROCHLORIDE) [Concomitant]
  6. MULTIVITAMINS (ASCORBIC ACID, ERGOCALCIFEROL, FOLIC ACID, NICOTINAMIDE, PANTHENOL, RETINOL, RIBOFLAVIN, THIAMINE HYDROCHLORIDE) [Concomitant]
  7. IBUPROFEN (IBUPROFEN) [Concomitant]
  8. COLECALCIFEROL (COLECALCIFEROL) [Concomitant]
  9. BROMDAY (BROMFENAC SODIUM) [Concomitant]

REACTIONS (5)
  - Musculoskeletal pain [None]
  - Visual impairment [None]
  - Muscle spasms [None]
  - Tremor [None]
  - Paraesthesia [None]
